FAERS Safety Report 6194897-5 (Version None)
Quarter: 2009Q2

REPORT INFORMATION
  Report Type: 
  Country: None (occurrence: None)
  Receive Date: 20090519
  Receipt Date: 20090515
  Transmission Date: 20091009
  Serious: Yes (Hospitalization)
  Sender: FDA-Public Use
  Company Number: DE-WYE-G03696409

PATIENT
  Sex: Male
  Weight: 60 kg

DRUGS (3)
  1. TREVILOR RETARD [Suspect]
     Dosage: UNKNOWN
     Route: 048
     Dates: start: 20090515, end: 20090515
  2. DOXEPIN HCL [Suspect]
     Dosage: UNKNOWN
     Route: 048
     Dates: start: 20090515, end: 20090515
  3. DIAZEPAM [Suspect]
     Dosage: UNKNOWN
     Route: 048
     Dates: start: 20090515, end: 20090515

REACTIONS (6)
  - DRUG ABUSE [None]
  - PYREXIA [None]
  - RESPIRATORY DEPRESSION [None]
  - RHABDOMYOLYSIS [None]
  - SOMNOLENCE [None]
  - TACHYCARDIA [None]
